FAERS Safety Report 10065870 (Version 1)
Quarter: 2014Q2

REPORT INFORMATION
  Report Type: Report from Study
  Country: US (occurrence: US)
  Receive Date: 20140408
  Receipt Date: 20140408
  Transmission Date: 20141212
  Serious: Yes (Hospitalization)
  Sender: FDA-Public Use
  Company Number: US-ABBVIE-14P-163-1219746-00

PATIENT
  Age: 53 Year
  Sex: Female
  Weight: 89.44 kg

DRUGS (8)
  1. HUMIRA [Suspect]
     Indication: RHEUMATOID ARTHRITIS
     Dates: start: 2007, end: 201211
  2. PREDNISONE [Concomitant]
     Indication: RHEUMATOID ARTHRITIS
  3. PLAQUENIL [Concomitant]
     Indication: RHEUMATOID ARTHRITIS
  4. MULTIPLE VITAMINS [Concomitant]
     Indication: VITAMIN SUPPLEMENTATION
  5. VITAMIN D [Concomitant]
     Indication: VITAMIN D DEFICIENCY
     Dosage: DEFICIENCY
  6. VITAMIN C [Concomitant]
     Indication: VITAMIN SUPPLEMENTATION
  7. ALEVE [Concomitant]
     Indication: ARTHRALGIA
  8. NORCO [Concomitant]
     Indication: ARTHRALGIA

REACTIONS (4)
  - Pain [Recovered/Resolved]
  - Gastrointestinal disorder [Recovered/Resolved]
  - Skin irritation [Recovered/Resolved]
  - Tooth infection [Recovered/Resolved]
